FAERS Safety Report 13234405 (Version 1)
Quarter: 2017Q1

REPORT INFORMATION
  Report Type: Other
  Country: CA (occurrence: CA)
  Receive Date: 20170215
  Receipt Date: 20170215
  Transmission Date: 20170428
  Serious: Yes (Other)
  Sender: FDA-Public Use
  Company Number: CA-SHIRE-CA201702496

PATIENT
  Age: 68 Year
  Sex: Male

DRUGS (6)
  1. TPN [Concomitant]
     Active Substance: AMINO ACIDS\DEXTROSE\ELECTROLYTES NOS\SOYBEAN OIL
     Indication: SHORT-BOWEL SYNDROME
     Dosage: 3000 ML, OTHER (10-12 HOURS 6 OUT OF 14 DAYS)
     Route: 042
  2. VITAMIN D                          /00107901/ [Concomitant]
     Active Substance: ERGOCALCIFEROL
     Indication: PRODUCT USED FOR UNKNOWN INDICATION
     Dosage: 10000 IU, 1X/DAY:QD
     Route: 065
  3. PREVACID [Concomitant]
     Active Substance: LANSOPRAZOLE
     Indication: PRODUCT USED FOR UNKNOWN INDICATION
     Dosage: UNK, UNKNOWN
     Route: 065
  4. SODIUM CHLORIDE. [Concomitant]
     Active Substance: SODIUM CHLORIDE
     Indication: SHORT-BOWEL SYNDROME
     Dosage: 1 G, UNKNOWN (WITH FLUDS)
     Route: 065
  5. GASTROLYTE                         /00386201/ [Concomitant]
     Indication: PROPHYLAXIS AGAINST DEHYDRATION
     Dosage: UNK, UNKNOWN
     Route: 065
     Dates: start: 20160327
  6. REVESTIVE [Suspect]
     Active Substance: TEDUGLUTIDE
     Indication: SHORT-BOWEL SYNDROME
     Dosage: 3.60 MG, 1X/DAY:QD
     Route: 058
     Dates: start: 20160216

REACTIONS (5)
  - Diarrhoea [Unknown]
  - Pain [Recovered/Resolved]
  - Intestinal obstruction [Unknown]
  - Malaise [Unknown]
  - Dyspepsia [Unknown]

NARRATIVE: CASE EVENT DATE: 201701
